FAERS Safety Report 5903041-8 (Version None)
Quarter: 2008Q3

REPORT INFORMATION
  Report Type: 
  Country: None (occurrence: None)
  Receive Date: 20080930
  Receipt Date: 20080925
  Transmission Date: 20090109
  Serious: Yes (Hospitalization)
  Sender: FDA-Public Use
  Company Number: FR-ABBOTT-08P-056-0478405-00

PATIENT
  Sex: Male

DRUGS (11)
  1. SEVORANE LIQUID FOR INHALATION [Suspect]
     Indication: ANAESTHESIA
     Route: 055
     Dates: start: 20080519, end: 20080519
  2. PROPOFOL [Suspect]
     Indication: ANAESTHESIA
     Dates: start: 20080519, end: 20080519
  3. FENTANYL [Suspect]
     Indication: ANAESTHESIA
     Route: 042
     Dates: start: 20080519, end: 20080519
  4. FENTANYL [Suspect]
     Route: 042
     Dates: start: 20080519, end: 20080519
  5. MIDAZOLAM [Concomitant]
     Indication: ANAESTHESIA
     Dates: start: 20080519, end: 20080519
  6. CEFAMANDOLE NAFATE [Concomitant]
     Indication: ANAESTHESIA
     Dates: start: 20080519, end: 20080519
  7. SALBUTAMOL [Concomitant]
     Indication: DRUG USE FOR UNKNOWN INDICATION
     Dates: start: 20080519, end: 20080519
  8. BECLOMETHASONE DIPROPIONATE [Concomitant]
     Indication: DRUG USE FOR UNKNOWN INDICATION
     Dates: start: 20080519, end: 20080519
  9. ACETAMINOPHEN [Concomitant]
     Indication: DRUG USE FOR UNKNOWN INDICATION
     Dates: start: 20080519, end: 20080519
  10. KEBUZONE [Concomitant]
     Indication: DRUG USE FOR UNKNOWN INDICATION
     Dates: start: 20080519, end: 20080519
  11. NEFOPAM CHLORHYDRATE [Concomitant]
     Indication: DRUG USE FOR UNKNOWN INDICATION
     Dates: start: 20080519, end: 20080519

REACTIONS (6)
  - ARRHYTHMIA [None]
  - ATRIAL FIBRILLATION [None]
  - CARDIAC ARREST [None]
  - END-TIDAL CO2 DECREASED [None]
  - HEART RATE INCREASED [None]
  - VENTRICULAR TACHYCARDIA [None]
